FAERS Safety Report 20636106 (Version 3)
Quarter: 2023Q1

REPORT INFORMATION
  Report Type: Spontaneous
  Country: IT (occurrence: IT)
  Receive Date: 20220325
  Receipt Date: 20230316
  Transmission Date: 20230418
  Serious: Yes (Other)
  Sender: FDA-Public Use
  Company Number: IT-MACLEODS PHARMACEUTICALS US LTD-MAC2021031055

PATIENT

DRUGS (6)
  1. CLOBETASOL [Suspect]
     Active Substance: CLOBETASOL
     Indication: Stomatitis
     Dosage: 50 MILLIGRAM (ADMINISTERED AS A GALENIC MIXTURE CONTAINING 15 G OF CLOBETASOL(0.05% CLOBETASOL PROPI
     Route: 061
     Dates: start: 201401, end: 201705
  2. PREDNISOLONE [Suspect]
     Active Substance: PREDNISOLONE
     Indication: Colitis
     Dosage: 0.5 MILLIGRAM/KILOGRAM, QD (STARTED ORAL PREDNISOLONE 0.5-1 MG/KG/DAY IN APRIL 2013 AND STOPPED SINC
     Route: 048
  3. PREDNISOLONE [Suspect]
     Active Substance: PREDNISOLONE
     Dosage: 1 MILLIGRAM/KILOGRAM, QD (STARTED ORAL PREDNISOLONE 0.5-1 MG/KG/DAY IN APRIL 2013 AND STOPPED SINCE
     Route: 048
  4. PREDNISOLONE [Suspect]
     Active Substance: PREDNISOLONE
     Dosage: UNK
     Route: 048
     Dates: start: 2014, end: 201605
  5. HYDROXYETHYLCELLULOSE [Concomitant]
     Indication: Product used for unknown indication
     Dosage: UNK (ADMINISTERED AS A GALENIC MIXTURE CONTAINING 15 G OF CLOBETASOL(0.05% CLOBETASOL PROPIONATE CP)
     Route: 061
  6. INFLIXIMAB [Concomitant]
     Active Substance: INFLIXIMAB
     Indication: Colitis
     Dosage: 300 MILLIGRAM, EVERY EIGHT WEEKS
     Route: 065

REACTIONS (4)
  - Cushing^s syndrome [Recovered/Resolved]
  - Adrenal suppression [Recovered/Resolved]
  - Incorrect product administration duration [Recovered/Resolved]
  - Incorrect dose administered [Recovered/Resolved]

NARRATIVE: CASE EVENT DATE: 20130101
